FAERS Safety Report 8080275-0 (Version None)
Quarter: 2012Q1

REPORT INFORMATION
  Report Type: 
  Country: None (occurrence: None)
  Receive Date: 20120130
  Receipt Date: 20120126
  Transmission Date: 20120608
  Serious: No
  Sender: FDA-Public Use
  Company Number: US-TEVA-319563USA

PATIENT
  Sex: Male
  Weight: 61.29 kg

DRUGS (3)
  1. LOVAZA [Concomitant]
  2. VITAMIN D [Concomitant]
  3. COPAXONE [Suspect]
     Indication: MULTIPLE SCLEROSIS
     Dosage: 20 MILLIGRAM;
     Route: 058
     Dates: start: 20110801

REACTIONS (1)
  - DEMYELINATION [None]
